FAERS Safety Report 21615893 (Version 1)
Quarter: 2022Q4

REPORT INFORMATION
  Report Type: Spontaneous
  Country: US (occurrence: None)
  Receive Date: 20221118
  Receipt Date: 20221118
  Transmission Date: 20230113
  Serious: Yes (Hospitalization)
  Sender: FDA-Public Use
  Company Number: None

PATIENT
  Age: 22 Year
  Sex: Male

DRUGS (4)
  1. CLOZAPINE [Suspect]
     Active Substance: CLOZAPINE
     Indication: Schizophrenia
     Dosage: FREQUENCY : AT BEDTIME;?
     Route: 048
     Dates: start: 20221011, end: 20221025
  2. CETIRIZINE [Concomitant]
     Active Substance: CETIRIZINE HYDROCHLORIDE
  3. Divalproex ER 1750 mg [Concomitant]
  4. Paliperidone LAI 234 mg [Concomitant]

REACTIONS (4)
  - Anticonvulsant drug level above therapeutic [None]
  - Refusal of treatment by patient [None]
  - Myocarditis [None]
  - Adverse drug reaction [None]

NARRATIVE: CASE EVENT DATE: 20221026
